FAERS Safety Report 14074065 (Version 1)
Quarter: 2017Q4

REPORT INFORMATION
  Report Type: Spontaneous
  Country: US (occurrence: US)
  Receive Date: 20171010
  Receipt Date: 20171010
  Transmission Date: 20180321
  Serious: No
  Sender: FDA-Public Use
  Company Number: US-JNJFOC-20170923722

PATIENT
  Age: 82 Year
  Sex: Female
  Weight: 47.17 kg

DRUGS (2)
  1. TYLENOL EXTRA STRENGTH [Suspect]
     Active Substance: ACETAMINOPHEN
     Indication: PRODUCT USED FOR UNKNOWN INDICATION
     Route: 048
     Dates: start: 20170919, end: 20170920
  2. GABAPENTIN. [Concomitant]
     Active Substance: GABAPENTIN
     Indication: PRODUCT USED FOR UNKNOWN INDICATION
     Dosage: A MONTH AGO
     Route: 065

REACTIONS (6)
  - Nausea [Recovered/Resolved]
  - Retching [Recovered/Resolved]
  - Product packaging issue [Unknown]
  - Product lot number issue [Unknown]
  - Malaise [Recovered/Resolved]
  - Product expiration date issue [Unknown]

NARRATIVE: CASE EVENT DATE: 20170920
